FAERS Safety Report 14712264 (Version 1)
Quarter: 2018Q2

REPORT INFORMATION
  Report Type: Spontaneous
  Country: US (occurrence: US)
  Receive Date: 20180404
  Receipt Date: 20180404
  Transmission Date: 20180711
  Serious: No
  Sender: FDA-Public Use
  Company Number: US-ASTRAZENECA-2018SE30354

PATIENT
  Age: 981 Month
  Sex: Male

DRUGS (4)
  1. BREO ELYPTA [Concomitant]
     Indication: CHRONIC OBSTRUCTIVE PULMONARY DISEASE
     Dosage: 100/25 MCG ONE PUFF DAILY
     Route: 055
     Dates: start: 20180302
  2. OXYGEN. [Concomitant]
     Active Substance: OXYGEN
     Dosage: UNKNOWN
  3. TUDORZA PRESSAIR [Suspect]
     Active Substance: ACLIDINIUM BROMIDE
     Dosage: 400 MCG 1 PUFF TWICE A DAY
     Route: 055
     Dates: start: 20180305
  4. ALBUTEROL NEBULIZER [Concomitant]
     Active Substance: ALBUTEROL
     Indication: WHEEZING
     Dosage: 2.5 MG/3 ML EVERY 6 HOURS AS NEEDED

REACTIONS (3)
  - Intentional device misuse [Not Recovered/Not Resolved]
  - Device malfunction [Not Recovered/Not Resolved]
  - Total lung capacity decreased [Not Recovered/Not Resolved]

NARRATIVE: CASE EVENT DATE: 201803
